FAERS Safety Report 17346171 (Version 1)
Quarter: 2020Q1

REPORT INFORMATION
  Report Type: Report from Study
  Country: US (occurrence: US)
  Receive Date: 20200129
  Receipt Date: 20200129
  Transmission Date: 20200409
  Serious: Yes (Other)
  Sender: FDA-Public Use
  Company Number: US-EXELIXIS-CABO-19023949

PATIENT
  Sex: Male

DRUGS (2)
  1. LASIX [Concomitant]
     Active Substance: FUROSEMIDE
     Dosage: UNK
  2. CABOMETYX [Suspect]
     Active Substance: CABOZANTINIB S-MALATE
     Indication: RENAL CELL CARCINOMA STAGE IV
     Dosage: 60 MG, QD
     Dates: start: 201908

REACTIONS (12)
  - Pancreatitis [Unknown]
  - Dyspnoea [Unknown]
  - Hepatic enzyme increased [Unknown]
  - Renal failure [Unknown]
  - Dizziness [Unknown]
  - Myalgia [Unknown]
  - Blood pressure increased [Unknown]
  - Nausea [Unknown]
  - Back pain [Unknown]
  - Musculoskeletal chest pain [Unknown]
  - Fatigue [Unknown]
  - Asthenia [Unknown]
